FAERS Safety Report 18674448 (Version 2)
Quarter: 2021Q1

REPORT INFORMATION
  Report Type: Spontaneous
  Country: IN (occurrence: IN)
  Receive Date: 20201229
  Receipt Date: 20210111
  Transmission Date: 20210419
  Serious: Yes (Other)
  Sender: FDA-Public Use
  Company Number: IN-LUPIN PHARMACEUTICALS INC.-2020-10852

PATIENT
  Sex: Male

DRUGS (1)
  1. COMBUTOL TAB UNCOATED 1 G [Suspect]
     Active Substance: ETHAMBUTOL HYDROCHLORIDE
     Indication: TUBERCULOSIS
     Dosage: 1000 MILLIGRAM, QD
     Route: 048

REACTIONS (4)
  - Hepatic infection [Unknown]
  - Nausea [Unknown]
  - Vomiting [Unknown]
  - Product dispensing error [Unknown]
